FAERS Safety Report 13344867 (Version 3)
Quarter: 2017Q2

REPORT INFORMATION
  Report Type: Report from Study
  Country: US (occurrence: US)
  Receive Date: 20170317
  Receipt Date: 20170426
  Transmission Date: 20170830
  Serious: Yes (Hospitalization, Other)
  Sender: FDA-Public Use
  Company Number: US-GILEAD-2017-0262059

PATIENT
  Age: 66 Year
  Sex: Female
  Weight: 110.2 kg

DRUGS (11)
  1. CELEXA [Concomitant]
     Active Substance: CITALOPRAM HYDROBROMIDE
  2. AMBRISENTAN [Suspect]
     Active Substance: AMBRISENTAN
     Indication: SLEEP APNOEA SYNDROME
  3. AMBRISENTAN [Suspect]
     Active Substance: AMBRISENTAN
     Indication: DIASTOLIC DYSFUNCTION
  4. LEVOPHED [Concomitant]
     Active Substance: NOREPINEPHRINE BITARTRATE
  5. AMBRISENTAN [Suspect]
     Active Substance: AMBRISENTAN
     Indication: PULMONARY ARTERIAL HYPERTENSION
     Dosage: 10 MG, QD
     Route: 065
     Dates: start: 20151112
  6. VANCOMYCIN [Concomitant]
     Active Substance: VANCOMYCIN
  7. ZAROXOLYN [Concomitant]
     Active Substance: METOLAZONE
  8. IMIPENEM [Concomitant]
     Active Substance: IMIPENEM
  9. LASIX [Concomitant]
     Active Substance: FUROSEMIDE
  10. ADCIRCA [Concomitant]
     Active Substance: TADALAFIL
     Indication: PULMONARY ARTERIAL HYPERTENSION
     Dates: start: 20151202
  11. NEURONTIN [Concomitant]
     Active Substance: GABAPENTIN

REACTIONS (4)
  - Hypotension [Recovered/Resolved]
  - Septic shock [Recovered/Resolved]
  - Cholecystitis [Recovered/Resolved]
  - Respiratory distress [Recovered/Resolved]

NARRATIVE: CASE EVENT DATE: 20170313
